FAERS Safety Report 10189396 (Version 2)
Quarter: 2014Q2

REPORT INFORMATION
  Report Type: Other
  Country: JP (occurrence: JP)
  Receive Date: 20140522
  Receipt Date: 20140629
  Transmission Date: 20141212
  Serious: Yes (Other)
  Sender: FDA-Public Use
  Company Number: JP-BRISTOL-MYERS SQUIBB COMPANY-20797429

PATIENT
  Sex: 0

DRUGS (1)
  1. ERBITUX SOLN FOR INF 5MG/ML [Suspect]
     Indication: PHARYNGEAL CANCER
     Route: 041
     Dates: start: 20131001

REACTIONS (1)
  - Pneumothorax [Recovering/Resolving]
